FAERS Safety Report 7943676-4 (Version None)
Quarter: 2011Q4

REPORT INFORMATION
  Report Type: 
  Country: None (occurrence: None)
  Receive Date: 20111128
  Receipt Date: 20111116
  Transmission Date: 20120403
  Serious: Yes (Hospitalization)
  Sender: FDA-Public Use
  Company Number: JP-JNJFOC-20111109438

PATIENT
  Age: 5 Decade
  Sex: Male

DRUGS (4)
  1. VIREAD [Suspect]
     Indication: HIV ANTIBODY POSITIVE
     Route: 048
     Dates: start: 20091001
  2. EMTRIVA [Suspect]
     Indication: HIV ANTIBODY POSITIVE
     Route: 048
     Dates: start: 20091001
  3. NORVIR [Suspect]
     Indication: HIV ANTIBODY POSITIVE
     Route: 048
     Dates: start: 20091001
  4. PREZISTA [Suspect]
     Indication: HIV ANTIBODY POSITIVE
     Route: 048
     Dates: start: 20091001

REACTIONS (2)
  - IMMUNE RECONSTITUTION SYNDROME [None]
  - HEPATITIS B [None]
